FAERS Safety Report 5914356-1 (Version None)
Quarter: 2008Q4

REPORT INFORMATION
  Report Type: 
  Country: None (occurrence: None)
  Receive Date: 20081007
  Receipt Date: 20080923
  Transmission Date: 20090506
  Serious: Yes (Hospitalization)
  Sender: FDA-Public Use
  Company Number: 2008BI025161

PATIENT
  Age: 39 Year
  Sex: Female

DRUGS (3)
  1. TYSABRI [Suspect]
     Indication: MULTIPLE SCLEROSIS
     Dosage: 300 MG;QM;IV
     Route: 042
     Dates: start: 20080630
  2. . [Concomitant]
  3. AVONEX [Concomitant]

REACTIONS (5)
  - BACK PAIN [None]
  - CHOLECYSTITIS INFECTIVE [None]
  - HEPATIC INFECTION [None]
  - KIDNEY INFECTION [None]
  - PYREXIA [None]
